FAERS Safety Report 4943367-8 (Version None)
Quarter: 2006Q1

REPORT INFORMATION
  Report Type: 
  Country: None (occurrence: None)
  Receive Date: 20060309
  Receipt Date: 20060227
  Transmission Date: 20060701
  Serious: Yes (Death)
  Sender: FDA-Public Use
  Company Number: 06H-163-0305963-00

PATIENT
  Age: 42 Year
  Sex: Female

DRUGS (13)
  1. CODEINE PHOSPHATE INJECTION (CODEINE PHOSPHATE) (CODEINE PHOSPHATE) [Suspect]
     Indication: COMPLETED SUICIDE
  2. DIAZEPAM [Concomitant]
     Indication: COMPLETED SUICIDE
  3. DIPHENHYDRAMINE HCL [Suspect]
     Indication: COMPLETED SUICIDE
  4. MORPHINE SULFATE [Suspect]
     Indication: COMPLETED SUICIDE
  5. ACETAMINOPHEN [Suspect]
     Indication: COMPLETED SUICIDE
  6. MEPROBAMATE [Suspect]
     Indication: COMPLETED SUICIDE
  7. CARISOPRODOL [Suspect]
     Indication: COMPLETED SUICIDE
  8. DOXEPIN HCL [Suspect]
     Indication: COMPLETED SUICIDE
  9. PROPOXYPHENE HCL [Suspect]
     Indication: COMPLETED SUICIDE
  10. DOXYLAMINE (DOXYLAMINE) [Suspect]
     Indication: COMPLETED SUICIDE
  11. NORCHLORCYCLIZINE [Suspect]
     Indication: COMPLETED SUICIDE
  12. CAFFEINE (CAFFEINE) [Suspect]
     Indication: COMPLETED SUICIDE
  13. NICOTINE [Suspect]
     Indication: COMPLETED SUICIDE

REACTIONS (4)
  - CARBON MONOXIDE POISONING [None]
  - COMPLETED SUICIDE [None]
  - DRUG TOXICITY [None]
  - OVERDOSE [None]
